FAERS Safety Report 5811646-8 (Version None)
Quarter: 2008Q3

REPORT INFORMATION
  Report Type: 
  Country: None (occurrence: None)
  Receive Date: 20080711
  Receipt Date: 20080711
  Transmission Date: 20090109
  Serious: Yes (Congenital Anomaly, Other)
  Sender: FDA-Public Use
  Company Number: None

PATIENT
  Age: 40 Year
  Sex: Female
  Weight: 81.6475 kg

DRUGS (2)
  1. CEPHALEXIN [Suspect]
     Indication: SALMONELLOSIS
     Dosage: THREE TIMES A DAY
  2. DIP ROBITUSSIN [Suspect]
     Indication: PHARYNGITIS BACTERIAL
     Dosage: ROB. AS PRN

REACTIONS (1)
  - UNEVALUABLE EVENT [None]
